FAERS Safety Report 9387251 (Version 1)
Quarter: 2013Q3

REPORT INFORMATION
  Report Type: Spontaneous
  Country: GB (occurrence: GB)
  Receive Date: 20130708
  Receipt Date: 20130708
  Transmission Date: 20140515
  Serious: No
  Sender: FDA-Public Use
  Company Number: GB-JNJFOC-20130701890

PATIENT
  Sex: Female

DRUGS (2)
  1. DUROGESIC DTRANS [Suspect]
     Indication: RHEUMATIC DISORDER
     Route: 062
  2. DUROGESIC DTRANS [Suspect]
     Indication: RHEUMATIC DISORDER
     Route: 062

REACTIONS (2)
  - Inappropriate schedule of drug administration [Unknown]
  - Pain [Unknown]
